FAERS Safety Report 6394303-1 (Version None)
Quarter: 2009Q4

REPORT INFORMATION
  Report Type: 
  Country: None (occurrence: None)
  Receive Date: 20091006
  Receipt Date: 20090923
  Transmission Date: 20100525
  Serious: Yes (Other)
  Sender: FDA-Public Use
  Company Number: 1000009151

PATIENT
  Age: 86 Year
  Sex: Female

DRUGS (2)
  1. MEMANTINE HCL [Suspect]
     Dosage: 10 MG (10 MG, 1 IN 1 D) ORAL
     Route: 048
  2. MEMANTINE HCL [Suspect]
     Dosage: 5 MG (5 MG, 1 IN 1 D, ORAL)
     Route: 048

REACTIONS (1)
  - NIGHTMARE [None]
